FAERS Safety Report 4411408-2 (Version None)
Quarter: 2004Q3

REPORT INFORMATION
  Report Type: 
  Country: None (occurrence: None)
  Receive Date: 20040727
  Receipt Date: 20040715
  Transmission Date: 20050211
  Serious: Yes (Other)
  Sender: FDA-Public Use
  Company Number: 2004224043DE

PATIENT
  Sex: Female
  Weight: 79 kg

DRUGS (3)
  1. EPIRUBICIN [Suspect]
     Indication: BREAST CANCER FEMALE
     Dosage: CYCLIC IV
     Route: 042
     Dates: end: 20040630
  2. NEUPOGEN [Concomitant]
  3. FRAGMIN [Concomitant]

REACTIONS (4)
  - ASTHENIA [None]
  - CONJUNCTIVITIS [None]
  - DYSPNOEA EXERTIONAL [None]
  - PYODERMA [None]
